FAERS Safety Report 17201918 (Version 1)
Quarter: 2019Q4

REPORT INFORMATION
  Report Type: Spontaneous
  Country: US (occurrence: US)
  Receive Date: 20191226
  Receipt Date: 20191226
  Transmission Date: 20200122
  Serious: No
  Sender: FDA-Public Use
  Company Number: US-PFIZER INC-2019548441

PATIENT
  Sex: Female

DRUGS (1)
  1. AROMASIN [Suspect]
     Active Substance: EXEMESTANE
     Indication: BREAST CANCER FEMALE
     Dosage: UNK

REACTIONS (6)
  - Premature ageing [Unknown]
  - Diarrhoea [Unknown]
  - Feeling abnormal [Unknown]
  - Pain [Unknown]
  - Balance disorder [Unknown]
  - Fatigue [Unknown]
